FAERS Safety Report 6424609-9 (Version None)
Quarter: 2009Q4

REPORT INFORMATION
  Report Type: 
  Country: None (occurrence: None)
  Receive Date: 20091103
  Receipt Date: 20091022
  Transmission Date: 20100525
  Serious: Yes (Hospitalization)
  Sender: FDA-Public Use
  Company Number: PHEH2009US14350

PATIENT
  Sex: Female

DRUGS (1)
  1. EXJADE [Suspect]
     Dosage: 1000, QD
     Route: 048
     Dates: start: 20090713, end: 20091014

REACTIONS (3)
  - BLOOD DISORDER [None]
  - LEUKAEMIA [None]
  - TERMINAL STATE [None]
